FAERS Safety Report 8955670 (Version 1)
Quarter: 2012Q4

REPORT INFORMATION
  Report Type: 
  Country: US (occurrence: US)
  Receive Date: 20121207
  Receipt Date: 20121207
  Transmission Date: 20130627
  Serious: No
  Sender: FDA-Public Use
  Company Number: US-VERTEX PHARMACEUTICALS INC.-2012-025700

PATIENT
  Age: 54 Year
  Sex: Female
  Weight: 113 kg

DRUGS (10)
  1. VX-950 (TELAPREVIR) [Suspect]
     Indication: HEPATITIS C
     Dosage: 750 mg, tid
     Route: 048
  2. PEGASYS [Concomitant]
     Indication: HEPATITIS C
     Dosage: 180MCG/M
  3. RIBAVIRIN [Concomitant]
     Indication: HEPATITIS C
  4. CALCIUM CIT [Concomitant]
  5. CENTRUM SILVER                     /02363801/ [Concomitant]
  6. VENLAFAXINE [Concomitant]
  7. SEROQUEL [Concomitant]
  8. LUNESTA [Concomitant]
  9. SYNTHROID [Concomitant]
  10. LOSARTAN POT [Concomitant]

REACTIONS (4)
  - Flatulence [Unknown]
  - Anorectal disorder [Unknown]
  - Diarrhoea [Unknown]
  - Vomiting [Unknown]
